FAERS Safety Report 9964209 (Version 2)
Quarter: 2014Q1

REPORT INFORMATION
  Report Type: Spontaneous
  Country: GB (occurrence: GB)
  Receive Date: 20140305
  Receipt Date: 20140324
  Transmission Date: 20141002
  Serious: Yes (Life-Threatening, Hospitalization, Other)
  Sender: FDA-Public Use
  Company Number: GB-B.I. PHARMACEUTICALS,INC./RIDGEFIELD-2014-BI-09383UK

PATIENT
  Age: 45 Year
  Sex: Male
  Weight: 101.5 kg

DRUGS (15)
  1. PRADAXA [Suspect]
     Indication: ATRIAL FIBRILLATION
     Route: 048
     Dates: start: 20121108, end: 201305
  2. PRADAXA [Suspect]
     Dosage: 220 MG
     Route: 048
     Dates: start: 201305, end: 20140222
  3. PRADAXA [Suspect]
     Dosage: 300 MG
     Route: 048
     Dates: start: 201402
  4. ALLOPURINOL [Concomitant]
     Indication: GOUT
     Route: 048
     Dates: start: 200609
  5. ALLOPURINOL [Concomitant]
     Indication: ARTHROPATHY
  6. RAMIPRIL [Concomitant]
     Indication: CARDIOMYOPATHY
     Route: 048
     Dates: start: 201212
  7. RAMIPRIL [Concomitant]
     Indication: ATRIAL FIBRILLATION
  8. SPIRONOLACTONE [Concomitant]
     Indication: CARDIOMYOPATHY
     Route: 048
     Dates: start: 201310
  9. SPIRONOLACTONE [Concomitant]
     Indication: ATRIAL FIBRILLATION
  10. BISOPROLOL [Concomitant]
     Indication: CARDIOMYOPATHY
     Dosage: 2.5- 5 MG
     Route: 048
     Dates: start: 2012, end: 2013
  11. BISOPROLOL [Concomitant]
     Indication: ATRIAL FIBRILLATION
  12. SPIRONOLACTONE [Concomitant]
     Indication: CARDIOMYOPATHY
     Route: 048
     Dates: start: 201312
  13. SPIRONOLACTONE [Concomitant]
     Indication: ATRIAL FIBRILLATION
  14. BISOPROLOL [Concomitant]
     Indication: CARDIOMYOPATHY
     Route: 048
     Dates: start: 201401
  15. BISOPROLOL [Concomitant]
     Indication: ATRIAL FIBRILLATION

REACTIONS (2)
  - Transient ischaemic attack [Recovered/Resolved]
  - Incorrect product storage [Unknown]
